FAERS Safety Report 9115750 (Version 1)
Quarter: 2013Q1

REPORT INFORMATION
  Report Type: Spontaneous
  Country: US (occurrence: US)
  Receive Date: 20130225
  Receipt Date: 20130225
  Transmission Date: 20140127
  Serious: Yes (Hospitalization)
  Sender: FDA-Public Use
  Company Number: US-BAYER-2013-021750

PATIENT
  Age: 42 Year
  Sex: Female
  Weight: 126.98 kg

DRUGS (3)
  1. SAFYRAL [Suspect]
     Indication: MENSTRUATION IRREGULAR
     Dosage: UNK
     Dates: start: 20111007
  2. ZYRTEC [Concomitant]
     Dosage: 10 MG QD PRN
  3. LEVOTHYROXINE [Concomitant]
     Dosage: 50 MCG QD
     Dates: start: 201110

REACTIONS (3)
  - Pulmonary embolism [Recovered/Resolved]
  - Deep vein thrombosis [Recovered/Resolved]
  - Off label use [None]
